FAERS Safety Report 16398448 (Version 4)
Quarter: 2020Q1

REPORT INFORMATION
  Report Type: Report from Study
  Country: US (occurrence: US)
  Receive Date: 20190606
  Receipt Date: 20200320
  Transmission Date: 20200409
  Serious: Yes (Other)
  Sender: FDA-Public Use
  Company Number: US-PFIZER INC-2019234374

PATIENT
  Age: 63 Year
  Sex: Female

DRUGS (5)
  1. METHOTREXATE. [Concomitant]
     Active Substance: METHOTREXATE
     Dosage: UNK
  2. XELJANZ XR [Suspect]
     Active Substance: TOFACITINIB CITRATE
     Indication: RHEUMATOID ARTHRITIS
     Dosage: 11 MG, DAILY
     Route: 048
     Dates: start: 20190220
  3. CRANBERRY. [Concomitant]
     Active Substance: CRANBERRY
     Indication: INFECTION PROPHYLAXIS
  4. PREDNISONE. [Concomitant]
     Active Substance: PREDNISONE
     Dosage: 1 MG, UNK (DECREASED TO 1MG EVERY OTHER DAY 2 MONTHS AGO)
  5. PREDNISONE. [Concomitant]
     Active Substance: PREDNISONE
     Dosage: UNK

REACTIONS (8)
  - Palpitations [Recovering/Resolving]
  - Feeling cold [Unknown]
  - Hepatic enzyme increased [Recovered/Resolved]
  - Arthralgia [Recovering/Resolving]
  - Heart rate increased [Recovering/Resolving]
  - Blood cholesterol increased [Unknown]
  - Fatigue [Unknown]
  - Acne [Unknown]

NARRATIVE: CASE EVENT DATE: 20190425
